FAERS Safety Report 5127398-3 (Version None)
Quarter: 2006Q4

REPORT INFORMATION
  Report Type: 
  Country: None (occurrence: None)
  Receive Date: 20061013
  Receipt Date: 20061013
  Transmission Date: 20070319
  Serious: No
  Sender: FDA-Public Use
  Company Number: None

PATIENT
  Age: 42 Year
  Sex: Male

DRUGS (5)
  1. GENTAMICIN [Suspect]
     Indication: ENDOCARDITIS
     Dosage: INTRAVENOUS; 70.0
     Route: 042
     Dates: start: 20060729, end: 20060731
  2. VANCOMYCIN [Suspect]
     Indication: ENDOCARDITIS
     Dosage: INTRAVENOUS; 1.0
     Route: 042
     Dates: start: 20060729, end: 20060731
  3. VANCOMUCIN [Concomitant]
  4. ENOXAPARIN SODIUM [Concomitant]
  5. ASPIRIN [Concomitant]

REACTIONS (3)
  - DRUG TOXICITY [None]
  - RENAL FAILURE ACUTE [None]
  - RENAL TUBULAR NECROSIS [None]
